FAERS Safety Report 17841564 (Version 2)
Quarter: 2020Q2

REPORT INFORMATION
  Report Type: Spontaneous
  Country: US (occurrence: US)
  Receive Date: 20200529
  Receipt Date: 20200529
  Transmission Date: 20200714
  Serious: Yes (Death)
  Sender: FDA-Public Use
  Company Number: US-ROCHE-2584353

PATIENT
  Age: 70 Year
  Sex: Female

DRUGS (14)
  1. CRESTOR [Concomitant]
     Active Substance: ROSUVASTATIN CALCIUM
  2. DEXAMETHASONE. [Concomitant]
     Active Substance: DEXAMETHASONE
  3. GABAPENTIN. [Concomitant]
     Active Substance: GABAPENTIN
  4. LINZESS [Concomitant]
     Active Substance: LINACLOTIDE
  5. FLECAINIDE [Concomitant]
     Active Substance: FLECAINIDE
  6. DEXILANT [Concomitant]
     Active Substance: DEXLANSOPRAZOLE
  7. ERGOCALCIFEROL. [Concomitant]
     Active Substance: ERGOCALCIFEROL
  8. ALECENSA [Suspect]
     Active Substance: ALECTINIB HYDROCHLORIDE
     Indication: NEOPLASM MALIGNANT
     Route: 048
  9. ROSUVASTATIN. [Concomitant]
     Active Substance: ROSUVASTATIN
  10. FAMOTIDINE. [Concomitant]
     Active Substance: FAMOTIDINE
  11. FOLIC ACID. [Concomitant]
     Active Substance: FOLIC ACID
  12. NEURONTIN [Concomitant]
     Active Substance: GABAPENTIN
  13. DARIFENACIN. [Concomitant]
     Active Substance: DARIFENACIN
  14. ELIQUIS [Concomitant]
     Active Substance: APIXABAN

REACTIONS (1)
  - Death [Fatal]
